FAERS Safety Report 19303477 (Version 1)
Quarter: 2021Q2

REPORT INFORMATION
  Report Type: Spontaneous
  Country: US (occurrence: US)
  Receive Date: 20210525
  Receipt Date: 20210525
  Transmission Date: 20210717
  Serious: Yes (Hospitalization, Other)
  Sender: FDA-Public Use
  Company Number: US-LUPIN PHARMACEUTICALS INC.-2021-07799

PATIENT
  Age: 5 Year
  Sex: Male

DRUGS (7)
  1. LEFLUNOMIDE. [Interacting]
     Active Substance: LEFLUNOMIDE
     Dosage: 20 MILLIGRAM, QD
     Route: 048
  2. MERCAPTOPURINE. [Interacting]
     Active Substance: MERCAPTOPURINE
     Indication: B-CELL TYPE ACUTE LEUKAEMIA
     Dosage: UNK, 50% DOSE
     Route: 048
  3. VINCRISTINE [Concomitant]
     Active Substance: VINCRISTINE
     Indication: ACUTE LYMPHOCYTIC LEUKAEMIA
     Dosage: UNK (OMITTED FROM TREATMENT TO MINIMIZE IMMUNOSUPPRESSION)
     Route: 065
  4. LEFLUNOMIDE. [Suspect]
     Active Substance: LEFLUNOMIDE
     Indication: POLYOMAVIRUS-ASSOCIATED NEPHROPATHY
     Dosage: 50 MILLIGRAM, QD, LOADING DOSE
     Route: 048
  5. MERCAPTOPURINE. [Interacting]
     Active Substance: MERCAPTOPURINE
     Indication: ACUTE LYMPHOCYTIC LEUKAEMIA
     Dosage: UNK
     Route: 048
  6. VINCRISTINE [Concomitant]
     Active Substance: VINCRISTINE
     Indication: B-CELL TYPE ACUTE LEUKAEMIA
  7. IMMUNOGLOBULIN [Concomitant]
     Indication: POLYOMAVIRUS-ASSOCIATED NEPHROPATHY
     Dosage: UNK (SPACED OUT TO EVERY 4 WEEKS)
     Route: 042

REACTIONS (3)
  - Transaminases increased [Unknown]
  - Drug interaction [Unknown]
  - Pancytopenia [Unknown]
